FAERS Safety Report 6768219-2 (Version None)
Quarter: 2010Q2

REPORT INFORMATION
  Report Type: 
  Country: None (occurrence: None)
  Receive Date: 20100614
  Receipt Date: 20100603
  Transmission Date: 20101027
  Serious: Yes (Other)
  Sender: FDA-Public Use
  Company Number: CA-PFIZER INC-2010070315

PATIENT

DRUGS (1)
  1. ZELDOX [Suspect]
     Dosage: 80 MG, 2X/DAY

REACTIONS (2)
  - DRUG INEFFECTIVE [None]
  - HALLUCINATION [None]
